FAERS Safety Report 5726669-7 (Version None)
Quarter: 2008Q2

REPORT INFORMATION
  Report Type: 
  Country: None (occurrence: None)
  Receive Date: 20080502
  Receipt Date: 20080421
  Transmission Date: 20081010
  Serious: Yes (Hospitalization, Disabling)
  Sender: FDA-Public Use
  Company Number: US-PFIZER INC-2006011169

PATIENT
  Sex: Male
  Weight: 95 kg

DRUGS (7)
  1. SU-011,248 [Suspect]
     Indication: GASTROINTESTINAL STROMAL TUMOUR
     Route: 048
     Dates: start: 20060106, end: 20060222
  2. ATENOLOL [Concomitant]
     Dosage: FREQ:UNKNOWN
     Route: 048
  3. NORVASC [Concomitant]
     Dosage: FREQ:UNKNOWN
     Route: 048
  4. LIPITOR [Concomitant]
     Dosage: FREQ:UNKNOWN
     Route: 048
  5. ACETYLSALICYLIC ACID SRT [Concomitant]
     Route: 048
  6. NITROGLYCERIN [Concomitant]
     Dosage: FREQ:UNKNOWN
     Route: 048
  7. HYTRIN [Concomitant]
     Dosage: FREQ:UNKNOWN
     Route: 048

REACTIONS (8)
  - GUILLAIN-BARRE SYNDROME [None]
  - HAEMOGLOBIN [None]
  - INFECTION [None]
  - LEUKOPENIA [None]
  - NEUTROPENIA [None]
  - PALMAR-PLANTAR ERYTHRODYSAESTHESIA SYNDROME [None]
  - PYREXIA [None]
  - THROMBOCYTOPENIA [None]
